FAERS Safety Report 26163487 (Version 1)
Quarter: 2025Q4

REPORT INFORMATION
  Report Type: Report from Study
  Country: US (occurrence: US)
  Receive Date: 20251216
  Receipt Date: 20251216
  Transmission Date: 20260118
  Serious: Yes (Other)
  Sender: ABBVIE
  Company Number: US-ABBVIE-6586926

PATIENT
  Sex: Male

DRUGS (1)
  1. SKYRIZI [Suspect]
     Active Substance: RISANKIZUMAB-RZAA
     Indication: Psoriasis
     Route: 058
     Dates: start: 20241009

REACTIONS (4)
  - Limb injury [Unknown]
  - Fall [Not Recovered/Not Resolved]
  - Neck injury [Unknown]
  - Back injury [Unknown]

NARRATIVE: CASE EVENT DATE: 20240101
